FAERS Safety Report 25105055 (Version 1)
Quarter: 2025Q1

REPORT INFORMATION
  Report Type: Spontaneous
  Country: JP (occurrence: JP)
  Receive Date: 20250321
  Receipt Date: 20250321
  Transmission Date: 20250409
  Serious: Yes (Hospitalization, Other)
  Sender: MERCK SHARP & DOHME LLC
  Company Number: JP-009507513-2264238

PATIENT
  Age: 76 Year
  Sex: Female
  Weight: 37 kg

DRUGS (10)
  1. KEYTRUDA [Suspect]
     Active Substance: PEMBROLIZUMAB
     Indication: Renal cancer
     Route: 042
     Dates: start: 20221221, end: 20231225
  2. LENVIMA [Suspect]
     Active Substance: LENVATINIB
     Indication: Renal cancer
     Route: 048
     Dates: start: 20221221, end: 20231225
  3. LOXOPROFEN [Concomitant]
     Active Substance: LOXOPROFEN
     Route: 050
     Dates: start: 20221225, end: 20240103
  4. REBAMIPIDE [Concomitant]
     Active Substance: REBAMIPIDE
     Route: 048
     Dates: start: 20221225, end: 20240103
  5. CALONAL [Concomitant]
     Active Substance: ACETAMINOPHEN
     Dates: start: 20221224, end: 20240103
  6. AZELNIDIPINE\OLMESARTAN MEDOXOMIL [Concomitant]
     Active Substance: AZELNIDIPINE\OLMESARTAN MEDOXOMIL
  7. OLMESARTAN [Concomitant]
     Active Substance: OLMESARTAN
     Route: 048
     Dates: start: 20240103
  8. PITAVASTATIN [Concomitant]
     Active Substance: PITAVASTATIN
     Route: 048
  9. RUPAFIN [Concomitant]
     Active Substance: RUPATADINE FUMARATE
     Route: 048
  10. ESOMEPRAZOLE [Concomitant]
     Active Substance: ESOMEPRAZOLE
     Route: 048
     Dates: start: 20240305, end: 20240408

REACTIONS (2)
  - Tubulointerstitial nephritis [Recovering/Resolving]
  - Oesophagitis [Recovering/Resolving]

NARRATIVE: CASE EVENT DATE: 20240103
